FAERS Safety Report 16607170 (Version 2)
Quarter: 2019Q3

REPORT INFORMATION
  Report Type: Spontaneous
  Country: US (occurrence: US)
  Receive Date: 20190722
  Receipt Date: 20190726
  Transmission Date: 20191004
  Serious: Yes (Hospitalization, Other)
  Sender: FDA-Public Use
  Company Number: US-GLAXOSMITHKLINE-US2019AMR129733

PATIENT
  Age: 61 Year
  Sex: Female

DRUGS (1)
  1. ADVAIR DISKUS [Suspect]
     Active Substance: FLUTICASONE PROPIONATE\SALMETEROL XINAFOATE
     Indication: PRODUCT USED FOR UNKNOWN INDICATION
     Dosage: UNK
     Route: 065
     Dates: start: 1994

REACTIONS (12)
  - Brain neoplasm [Unknown]
  - Craniotomy [Unknown]
  - Loss of consciousness [Unknown]
  - Respiratory failure [Unknown]
  - Cerebrovascular accident [Unknown]
  - Pneumonia [Unknown]
  - Coma [Unknown]
  - Myocardial infarction [Unknown]
  - Epilepsy [Unknown]
  - Amnesia [Unknown]
  - Seizure [Unknown]
  - Respiratory arrest [Unknown]

NARRATIVE: CASE EVENT DATE: 20171207
